FAERS Safety Report 7833625-1 (Version None)
Quarter: 2011Q4

REPORT INFORMATION
  Report Type: 
  Country: None (occurrence: None)
  Receive Date: 20111020
  Receipt Date: 20111006
  Transmission Date: 20120403
  Serious: Yes (Other)
  Sender: FDA-Public Use
  Company Number: 2011PV000057

PATIENT
  Age: 28 Year
  Sex: Male

DRUGS (1)
  1. DEPOCYT [Suspect]
     Indication: LEUKAEMIC INFILTRATION BRAIN
     Dosage: 50 MG;QOW;INTH
     Route: 037
     Dates: start: 20110801

REACTIONS (2)
  - BRAIN OEDEMA [None]
  - VIITH NERVE PARALYSIS [None]
